FAERS Safety Report 11503843 (Version 1)
Quarter: 2015Q3

REPORT INFORMATION
  Report Type: Spontaneous
  Country: US (occurrence: US)
  Receive Date: 20150914
  Receipt Date: 20150914
  Transmission Date: 20151125
  Serious: No
  Sender: FDA-Public Use
  Company Number: US-ACTELION PHARMACEUTICALS US, INC.-A-NJ2015-122297

PATIENT
  Age: 48 Year
  Sex: Male

DRUGS (1)
  1. VELETRI [Suspect]
     Active Substance: EPOPROSTENOL
     Indication: PULMONARY HYPERTENSION
     Dosage: 18.5 NG/KG, PER MIN
     Route: 042
     Dates: start: 20131108

REACTIONS (1)
  - Catheter site erythema [Recovering/Resolving]
